FAERS Safety Report 5917228-1 (Version None)
Quarter: 2008Q4

REPORT INFORMATION
  Report Type: 
  Country: None (occurrence: None)
  Receive Date: 20081014
  Receipt Date: 20081001
  Transmission Date: 20090506
  Serious: Yes (Hospitalization)
  Sender: FDA-Public Use
  Company Number: FR-AMGEN-UK309437

PATIENT
  Sex: Female

DRUGS (2)
  1. ROMIPLOSTIM [Suspect]
     Indication: MYELODYSPLASTIC SYNDROME
     Route: 058
     Dates: start: 20071209, end: 20080116
  2. ROMIPLOSTIM [Suspect]
     Route: 058
     Dates: start: 20080130

REACTIONS (1)
  - MYOCARDIAL INFARCTION [None]
